FAERS Safety Report 7179997-5 (Version None)
Quarter: 2010Q4

REPORT INFORMATION
  Report Type: 
  Country: None (occurrence: None)
  Receive Date: 20101221
  Receipt Date: 20101207
  Transmission Date: 20110411
  Serious: Yes (Hospitalization)
  Sender: FDA-Public Use
  Company Number: US-ACTELION-A-NJ2010-42080

PATIENT

DRUGS (2)
  1. VENTAVIS [Suspect]
     Indication: PULMONARY ARTERIAL HYPERTENSION
     Dosage: UNK
     Route: 055
     Dates: start: 20100707
  2. REVATIO [Concomitant]

REACTIONS (4)
  - HAEMORRHOIDS [None]
  - RECTAL FISSURE [None]
  - RECTAL HAEMORRHAGE [None]
  - SURGERY [None]
